FAERS Safety Report 6558465-5 (Version None)
Quarter: 2010Q1

REPORT INFORMATION
  Report Type: 
  Country: None (occurrence: None)
  Receive Date: 20100129
  Receipt Date: 20100125
  Transmission Date: 20100710
  Serious: Yes (Life-Threatening, Hospitalization)
  Sender: FDA-Public Use
  Company Number: Z0002675A

PATIENT
  Sex: Male
  Weight: 72 kg

DRUGS (2)
  1. OFATUMUMAB [Suspect]
     Route: 042
     Dates: start: 20090909, end: 20091202
  2. CHLORAMBUCIL [Suspect]
     Route: 048
     Dates: start: 20090909, end: 20091208

REACTIONS (1)
  - PNEUMONIA [None]
